FAERS Safety Report 5360000-4 (Version None)
Quarter: 2007Q2

REPORT INFORMATION
  Report Type: 
  Country: None (occurrence: None)
  Receive Date: 20070618
  Receipt Date: 20070606
  Transmission Date: 20071010
  Serious: Yes (Disabling, Other)
  Sender: FDA-Public Use
  Company Number: GB-JNJFOC-20070601976

PATIENT
  Age: 52 Year
  Weight: 75 kg

DRUGS (3)
  1. REMICADE [Suspect]
     Indication: CROHN'S DISEASE
     Route: 042
  2. AZATHIOPRINE [Concomitant]
  3. BUDESONIDE [Concomitant]
     Indication: CROHN'S DISEASE

REACTIONS (1)
  - SKIN EXFOLIATION [None]
